FAERS Safety Report 11045258 (Version 4)
Quarter: 2015Q2

REPORT INFORMATION
  Report Type: Spontaneous
  Country: US (occurrence: US)
  Receive Date: 20150417
  Receipt Date: 20150511
  Transmission Date: 20150821
  Serious: Yes (Life-Threatening, Hospitalization, Other)
  Sender: FDA-Public Use
  Company Number: PHHY2015US038656

PATIENT
  Age: 64 Year
  Sex: Male

DRUGS (20)
  1. BACLOFEN. [Suspect]
     Active Substance: BACLOFEN
     Indication: PRODUCT USED FOR UNKNOWN INDICATION
     Dosage: 1 DF, TID  FOR 14 DAYS.
     Route: 048
  2. BUPIVACAINE [Suspect]
     Active Substance: BUPIVACAINE
     Indication: MUSCLE SPASTICITY
     Dosage: 7.933 MG, QD
     Route: 037
  3. COLACE [Suspect]
     Active Substance: DOCUSATE SODIUM
     Indication: CONSTIPATION
     Dosage: 1 DF, UNK AS NEEDED FOR 30 DAYS.
     Route: 048
  4. EXALGO [Suspect]
     Active Substance: HYDROMORPHONE HYDROCHLORIDE
     Indication: PRODUCT USED FOR UNKNOWN INDICATION
     Dosage: 1 DF, QD FOR 15 DAYS.
     Route: 048
  5. FLUTICASONE FUROATE [Suspect]
     Active Substance: FLUTICASONE FUROATE
     Indication: PRODUCT USED FOR UNKNOWN INDICATION
     Dosage: NAS QG SPRAY INTO EACH NOSTRIL FOR 30 DAYS.
     Route: 045
  6. VALIUM [Suspect]
     Active Substance: DIAZEPAM
     Indication: PRODUCT USED FOR UNKNOWN INDICATION
     Dosage: 1 DF, TID FOR 30 DAYS
     Route: 048
  7. TAMSULOSIN [Suspect]
     Active Substance: TAMSULOSIN
     Indication: PRODUCT USED FOR UNKNOWN INDICATION
     Dosage: 2 DF, QD FOR 30 DAYS
     Route: 048
  8. SIMVASTATIN. [Suspect]
     Active Substance: SIMVASTATIN
     Indication: PRODUCT USED FOR UNKNOWN INDICATION
     Dosage: 1 DF, UNK QPM FOR 30 DAYS.
     Route: 048
  9. CALCITROL [Suspect]
     Active Substance: CALCITRIOL
     Indication: PRODUCT USED FOR UNKNOWN INDICATION
     Dosage: 1 DF, UNK AS DIRECTED ON MONDAY, WEDNESDAY,FRIDAY AT 12:00.
     Route: 048
  10. MULTIVITAMINS [Suspect]
     Active Substance: VITAMINS
     Indication: PRODUCT USED FOR UNKNOWN INDICATION
     Dosage: 1 DF, BID FOR 30 DAYS
     Route: 048
  11. BACLOFEN INTRATHECAL [Suspect]
     Active Substance: BACLOFEN
     Indication: MUSCLE SPASTICITY
     Dosage: 661.1 UG, QD
     Route: 037
  12. BACLOFEN INTRATHECAL [Suspect]
     Active Substance: BACLOFEN
     Dosage: 330 UG, QD
     Route: 037
  13. OMEPRAZOLE. [Suspect]
     Active Substance: OMEPRAZOLE
     Indication: PRODUCT USED FOR UNKNOWN INDICATION
     Dosage: 1 DF, QD FOR 30 DAYS
     Route: 048
  14. URECHOLINE [Suspect]
     Active Substance: BETHANECHOL CHLORIDE
     Indication: PRODUCT USED FOR UNKNOWN INDICATION
     Dosage: 1 DF, TID FOR 30 DAYS
     Route: 048
  15. BACLOFEN INTRATHECAL [Suspect]
     Active Substance: BACLOFEN
     Dosage: 150 UG, QD
     Route: 037
  16. TRAZODONE [Suspect]
     Active Substance: TRAZODONE HYDROCHLORIDE
     Indication: INSOMNIA
     Dosage: 3 DF, QHS FOR 30 DAYS
     Route: 048
  17. BUPIVACAINE [Suspect]
     Active Substance: BUPIVACAINE
     Dosage: 4 UNK, UNK
     Route: 037
  18. HYDROMORPHONE HCL [Suspect]
     Active Substance: HYDROMORPHONE HYDROCHLORIDE
     Indication: PRODUCT USED FOR UNKNOWN INDICATION
     Dosage: 2 DF, Q6H
     Route: 048
  19. LYRICA [Suspect]
     Active Substance: PREGABALIN
     Indication: PRODUCT USED FOR UNKNOWN INDICATION
     Dosage: 1 DF, BID FOR 30 DAYS
     Route: 048
  20. SENNOSIDE [Suspect]
     Active Substance: SENNOSIDES
     Indication: CONSTIPATION
     Dosage: 1 DF, BID AS NEEDED FOR 10 DAYS
     Route: 048

REACTIONS (20)
  - Vasoplegia syndrome [Recovering/Resolving]
  - Pain [Recovering/Resolving]
  - Hypotension [Recovering/Resolving]
  - Diplegia [Recovering/Resolving]
  - Miosis [Recovering/Resolving]
  - Unresponsive to stimuli [Recovering/Resolving]
  - Coma [Recovering/Resolving]
  - Chest X-ray abnormal [Recovering/Resolving]
  - Muscle rigidity [Recovering/Resolving]
  - Hypoaesthesia [Recovering/Resolving]
  - Oedema peripheral [Recovering/Resolving]
  - Dizziness [Recovering/Resolving]
  - Haemodynamic instability [Unknown]
  - Respiratory rate decreased [Recovering/Resolving]
  - Heart rate decreased [Recovering/Resolving]
  - Somnolence [Recovering/Resolving]
  - Musculoskeletal stiffness [Recovering/Resolving]
  - Overdose [Recovering/Resolving]
  - Shock [Recovering/Resolving]
  - Muscular weakness [Recovering/Resolving]

NARRATIVE: CASE EVENT DATE: 20150326
